FAERS Safety Report 10261182 (Version 2)
Quarter: 2014Q3

REPORT INFORMATION
  Report Type: Spontaneous
  Country: US (occurrence: US)
  Receive Date: 20140626
  Receipt Date: 20140814
  Transmission Date: 20150326
  Serious: No
  Sender: FDA-Public Use
  Company Number: US-009507513-1406USA007031

PATIENT
  Sex: Female

DRUGS (4)
  1. INTRON A [Suspect]
     Active Substance: INTERFERON ALFA-2B
     Dosage: 0.1 ML, 1.8 MILLION UNITS, ^2XCH^
     Route: 058
  2. INTRON A [Suspect]
     Active Substance: INTERFERON ALFA-2B
     Dosage: 600,000 UNITS TWICE WEEKLY
     Route: 058
  3. COZAAR [Concomitant]
     Active Substance: LOSARTAN POTASSIUM
     Dosage: UNK
  4. INTRON A [Suspect]
     Active Substance: INTERFERON ALFA-2B
     Indication: ESSENTIAL THROMBOCYTHAEMIA
     Dosage: 200 MILLION UNITS WEEKLY
     Route: 058
     Dates: start: 200606

REACTIONS (3)
  - Rosacea [Recovered/Resolved]
  - Raynaud^s phenomenon [Recovered/Resolved]
  - Alopecia [Recovered/Resolved]

NARRATIVE: CASE EVENT DATE: 2009
